FAERS Safety Report 5207804-6 (Version None)
Quarter: 2006Q4

REPORT INFORMATION
  Report Type: 
  Country: None (occurrence: None)
  Receive Date: 20061030
  Receipt Date: 20060821
  Transmission Date: 20070319
  Serious: No
  Sender: FDA-Public Use
  Company Number: 2005CT000306

PATIENT
  Age: 46 Year
  Sex: Female
  Weight: 69.8539 kg

DRUGS (11)
  1. VENTAVIS [Suspect]
     Indication: PULMONARY HYPERTENSION
     Dosage: 2.5 UG; ONCE; INH
     Route: 055
     Dates: start: 20050405, end: 20050405
  2. VENTAVIS [Suspect]
     Indication: PULMONARY HYPERTENSION
     Dosage: SEE IMAGE, INH
     Route: 055
     Dates: end: 20060807
  3. VENTAVIS [Suspect]
     Indication: PULMONARY HYPERTENSION
     Dosage: SEE IMAGE, INH
     Route: 055
     Dates: start: 20050405
  4. VENTAVIS [Suspect]
  5. VENTAVIS [Suspect]
  6. OXYGEN [Concomitant]
  7. DIGOXIN [Concomitant]
  8. WARFARIN SODIUM [Concomitant]
  9. ALLOPURINOL SODIUM [Concomitant]
  10. BICITRA [Concomitant]
  11. SILDENAFIL CITRATE [Concomitant]

REACTIONS (8)
  - COUGH [None]
  - DIZZINESS [None]
  - DRUG INEFFECTIVE [None]
  - FLUSHING [None]
  - HEADACHE [None]
  - KIDNEY INFECTION [None]
  - NAUSEA [None]
  - VOMITING [None]
